FAERS Safety Report 19362361 (Version 1)
Quarter: 2021Q2

REPORT INFORMATION
  Report Type: Spontaneous
  Country: AU (occurrence: AU)
  Receive Date: 20210601
  Receipt Date: 20210601
  Transmission Date: 20210717
  Serious: Yes (Life-Threatening, Other)
  Sender: FDA-Public Use
  Company Number: AU-PFIZER INC-2014050950

PATIENT
  Age: 80 Year
  Sex: Female

DRUGS (12)
  1. PREDNISOLONE. [Concomitant]
     Active Substance: PREDNISOLONE
     Dosage: 10 MG, EACH MORNING
  2. RANITIDINE. [Concomitant]
     Active Substance: RANITIDINE
     Dosage: UNK
  3. ECONAZOLE. [Concomitant]
     Active Substance: ECONAZOLE NITRATE
     Dosage: VAGINAL OVULES
  4. CITRAVESCENT [Concomitant]
     Dosage: UNK
  5. PARACETAMOL [Concomitant]
     Active Substance: ACETAMINOPHEN
     Dosage: UNK
  6. METHOTREXATE. [Suspect]
     Active Substance: METHOTREXATE
     Dosage: 10 MG ON FOUR CONSECUTIVE DAYS
  7. NORFLOXACIN [Concomitant]
     Active Substance: NORFLOXACIN
     Dosage: UNK
  8. METHOTREXATE. [Suspect]
     Active Substance: METHOTREXATE
     Indication: RHEUMATOID ARTHRITIS
     Dosage: 10 MG, WEEKLY
  9. GOLD [Concomitant]
     Active Substance: GOLD
     Indication: RHEUMATOID ARTHRITIS
     Dosage: UNK
     Route: 051
  10. SLOW K [Concomitant]
     Active Substance: POTASSIUM CHLORIDE
     Dosage: UNK
  11. CEPHALEXIN. [Concomitant]
     Active Substance: CEPHALEXIN
     Dosage: UNK
  12. NYSTATIN. [Concomitant]
     Active Substance: NYSTATIN
     Dosage: UNK

REACTIONS (16)
  - Pyrexia [Recovering/Resolving]
  - Vaginal discharge [Recovering/Resolving]
  - Proctitis [Recovering/Resolving]
  - Toxicity to various agents [Unknown]
  - Mouth ulceration [Recovering/Resolving]
  - Vaginal infection [Recovering/Resolving]
  - Oropharyngeal candidiasis [Recovering/Resolving]
  - Pancytopenia [Recovering/Resolving]
  - Mucosal inflammation [Recovered/Resolved]
  - Skin abrasion [Recovering/Resolving]
  - Blepharitis [Recovering/Resolving]
  - Accidental overdose [Unknown]
  - Diarrhoea [Recovering/Resolving]
  - Product dispensing error [Unknown]
  - Conjunctivitis [Recovering/Resolving]
  - Odynophagia [Recovering/Resolving]
